FAERS Safety Report 7510988-8 (Version None)
Quarter: 2011Q2

REPORT INFORMATION
  Report Type: 
  Country: None (occurrence: None)
  Receive Date: 20110531
  Receipt Date: 20110526
  Transmission Date: 20111010
  Serious: No
  Sender: FDA-Public Use
  Company Number: US-PFIZER INC-2011098833

PATIENT
  Sex: Female

DRUGS (3)
  1. PHENYTOIN [Suspect]
     Indication: CONVULSION
     Dosage: UNK, 1X/DAY
     Route: 048
  2. DILANTIN-125 [Suspect]
     Dosage: UNK
     Route: 048
  3. ACETAMINOPHEN [Concomitant]
     Indication: HEADACHE
     Dosage: UNK, AS NEEDED

REACTIONS (1)
  - DRUG SCREEN POSITIVE [None]
